FAERS Safety Report 10168619 (Version 1)
Quarter: 2014Q2

REPORT INFORMATION
  Report Type: Spontaneous
  Country: US (occurrence: US)
  Receive Date: 20140513
  Receipt Date: 20140513
  Transmission Date: 20141212
  Serious: Yes (Hospitalization)
  Sender: FDA-Public Use
  Company Number: US-BEH-2014042447

PATIENT
  Age: 52 Year
  Sex: Male

DRUGS (2)
  1. ALBURX 25% [Suspect]
     Route: 042
     Dates: start: 20130710, end: 20130710
  2. ALBURX 25% [Suspect]
     Indication: NEPHROTIC SYNDROME
     Route: 042
     Dates: start: 20130711, end: 20130711

REACTIONS (5)
  - Bacteraemia [Recovered/Resolved]
  - Enterobacter infection [Recovered/Resolved]
  - Chills [Recovered/Resolved]
  - Product contamination microbial [Unknown]
  - Infusion related reaction [None]
